FAERS Safety Report 20604165 (Version 1)
Quarter: 2022Q1

REPORT INFORMATION
  Report Type: Spontaneous
  Country: ES (occurrence: None)
  Receive Date: 20220316
  Receipt Date: 20220316
  Transmission Date: 20220423
  Serious: Yes (Hospitalization)
  Sender: FDA-Public Use
  Company Number: 2022A104002

PATIENT
  Age: 83 Year
  Sex: Female

DRUGS (13)
  1. DAPAGLIFLOZIN [Suspect]
     Active Substance: DAPAGLIFLOZIN
     Indication: Cardiac failure
     Route: 048
     Dates: start: 20220118, end: 20220225
  2. MIRTAZAPINE [Concomitant]
     Active Substance: MIRTAZAPINE
     Route: 048
     Dates: start: 20171109
  3. VIDESIL [Concomitant]
     Route: 048
     Dates: start: 20180215
  4. SOLUDRONATE SEMANAL [Concomitant]
     Route: 048
     Dates: start: 20200302
  5. SPIRONOLACTONE [Concomitant]
     Active Substance: SPIRONOLACTONE
     Route: 048
     Dates: start: 20160405
  6. FUROSEMIDE [Concomitant]
     Active Substance: FUROSEMIDE
     Route: 048
     Dates: start: 20220207
  7. SINTROM [Concomitant]
     Active Substance: ACENOCOUMAROL
     Dosage: SPL
     Route: 048
     Dates: start: 20150113
  8. PARACETAMOL KERN PHARMA [Concomitant]
     Route: 048
     Dates: start: 20211125
  9. QUETIAPINE FUMARATE [Concomitant]
     Active Substance: QUETIAPINE FUMARATE
     Route: 048
     Dates: start: 20131105
  10. BISOPROLOL FUMARATE [Concomitant]
     Active Substance: BISOPROLOL FUMARATE
     Route: 048
     Dates: start: 20200128
  11. ENTRESTO [Concomitant]
     Active Substance: SACUBITRIL\VALSARTAN
     Dosage: 49 MG/51 MG
     Route: 048
     Dates: start: 20210427
  12. LORAZEPAM [Concomitant]
     Active Substance: LORAZEPAM
     Route: 048
     Dates: start: 20120328
  13. VENLAFAXINA RETARD RATIOPHARM [Concomitant]
     Route: 048
     Dates: start: 20130222

REACTIONS (1)
  - Cutaneous vasculitis [Recovering/Resolving]

NARRATIVE: CASE EVENT DATE: 20220225
